FAERS Safety Report 4847802-5 (Version None)
Quarter: 2005Q4

REPORT INFORMATION
  Report Type: 
  Country: None (occurrence: None)
  Receive Date: 20051205
  Receipt Date: 20051122
  Transmission Date: 20060501
  Serious: Yes (Congenital Anomaly)
  Sender: FDA-Public Use
  Company Number: 2005150591

PATIENT
  Age: 38 Year
  Sex: Female

DRUGS (1)
  1. GELUSIL SUSPENSION [Suspect]
     Indication: DYSPEPSIA
     Dosage: 2 SOUP SPOONS DAILY ORAL
     Route: 048
     Dates: start: 20030101, end: 20051001

REACTIONS (2)
  - ANENCEPHALY [None]
  - DRUG EXPOSURE DURING PREGNANCY [None]
